FAERS Safety Report 9786160 (Version 1)
Quarter: 2013Q4

REPORT INFORMATION
  Report Type: Spontaneous
  Country: GB (occurrence: None)
  Receive Date: 20131224
  Receipt Date: 20131224
  Transmission Date: 20140711
  Serious: Yes (Other)
  Sender: FDA-Public Use
  Company Number: GB-DEXPHARM-20131159

PATIENT
  Age: 57 Year
  Sex: Female

DRUGS (1)
  1. OMEPRAZOLE (NON DEXCEL) [Suspect]
     Route: 048
     Dates: start: 20131112, end: 20131112

REACTIONS (6)
  - Disturbance in attention [None]
  - Dry mouth [None]
  - Fatigue [None]
  - Nausea [None]
  - Abdominal discomfort [None]
  - Tremor [None]
